FAERS Safety Report 16313436 (Version 3)
Quarter: 2019Q3

REPORT INFORMATION
  Report Type: Spontaneous
  Country: JP (occurrence: JP)
  Receive Date: 20190515
  Receipt Date: 20190919
  Transmission Date: 20191004
  Serious: Yes (Death, Life-Threatening, Hospitalization, Other)
  Sender: FDA-Public Use
  Company Number: JP-009507513-1904JPN002368J

PATIENT
  Age: 52 Year
  Sex: Male
  Weight: 50 kg

DRUGS (18)
  1. AMITIZA [Concomitant]
     Active Substance: LUBIPROSTONE
     Indication: CONSTIPATION
     Dosage: 24 MILLIGRAM, QD
     Route: 048
     Dates: start: 20181207, end: 20190508
  2. OXYCODONE [Concomitant]
     Active Substance: OXYCODONE
     Indication: PAIN
     Dosage: 10 MILLIGRAM, QD
     Route: 048
     Dates: start: 20190320, end: 20190322
  3. ALLOID G [Concomitant]
     Active Substance: SODIUM ALGINATE
     Indication: GASTROINTESTINAL TRACT IRRITATION
     Dosage: 20 MILLILITER, TID
     Route: 048
     Dates: start: 20190408, end: 20190508
  4. OXYCODONE [Concomitant]
     Active Substance: OXYCODONE
     Dosage: 40 MILLIGRAM, QD
     Route: 048
     Dates: start: 20190326, end: 20190508
  5. TSUMURA YOKUKANSAN EXTRACT GRANULES FOR ETHICAL USE [Concomitant]
     Active Substance: HERBALS
     Dosage: 7.5 GRAM
     Route: 048
     Dates: start: 20190328, end: 20190401
  6. ERYTHROMYCIN. [Concomitant]
     Active Substance: ERYTHROMYCIN
     Indication: PNEUMONIA
     Dosage: 200 MILLIGRAM
     Route: 048
     Dates: start: 20190117, end: 20190508
  7. NAIXAN [Concomitant]
     Active Substance: NAPROXEN SODIUM
     Indication: PYREXIA
     Dosage: 100 MILLIGRAM
     Route: 048
     Dates: start: 20190320, end: 20190508
  8. TSUMURA HANGEKOBOKUTO EXTRACT GRANULES FOR ETHICAL USE [Concomitant]
     Indication: ODYNOPHAGIA
     Dosage: 2.5 GRAM, TID
     Route: 065
     Dates: start: 20190408, end: 20190508
  9. KEYTRUDA [Suspect]
     Active Substance: PEMBROLIZUMAB
     Indication: NON-SMALL CELL LUNG CANCER
     Dosage: 200 MILLIGRAM, Q3W
     Route: 041
     Dates: start: 20190327, end: 20190327
  10. ENSURE H [Concomitant]
     Indication: HYPOPHAGIA
     Dosage: 250 MILLILITER, QD
     Route: 065
     Dates: start: 20190408, end: 20190508
  11. NEXIUM [Concomitant]
     Active Substance: ESOMEPRAZOLE MAGNESIUM
     Indication: GASTRITIS PROPHYLAXIS
     Dosage: 20 MILLIGRAM, QD
     Route: 048
     Dates: start: 20181205, end: 20190508
  12. PREGABALIN. [Concomitant]
     Active Substance: PREGABALIN
     Indication: PAIN
     Dosage: 75 MILLIGRAM
     Route: 048
     Dates: start: 20190319, end: 20190508
  13. OXYCODONE [Concomitant]
     Active Substance: OXYCODONE
     Dosage: 30 MILLIGRAM, QD
     Route: 048
     Dates: start: 20190323, end: 20190326
  14. OXINORM [Concomitant]
     Dosage: 5 MILLIGRAM
     Route: 048
     Dates: start: 20190326, end: 20190508
  15. BELSOMRA [Concomitant]
     Active Substance: SUVOREXANT
     Indication: INSOMNIA
     Dosage: 15 MILLIGRAM, QD
     Route: 048
     Dates: start: 20190405, end: 20190508
  16. CARBOCISTEINE [Concomitant]
     Active Substance: CARBOCYSTEINE
     Indication: PRODUCTIVE COUGH
     Dosage: 500 MILLIGRAM, TID
     Route: 048
     Dates: start: 20190117, end: 20190508
  17. MAGMITT [Concomitant]
     Active Substance: MAGNESIUM OXIDE
     Indication: CONSTIPATION
     Dosage: 330 MILLIGRAM, TID
     Route: 048
     Dates: start: 20190327, end: 20190508
  18. OXINORM [Concomitant]
     Indication: PAIN
     Dosage: 2.5 MILLIGRAM
     Route: 048
     Dates: start: 20190320, end: 20190325

REACTIONS (1)
  - Interstitial lung disease [Fatal]

NARRATIVE: CASE EVENT DATE: 20190411
